FAERS Safety Report 6234651-9 (Version None)
Quarter: 2009Q2

REPORT INFORMATION
  Report Type: 
  Country: None (occurrence: None)
  Receive Date: 20090618
  Receipt Date: 20090608
  Transmission Date: 20091009
  Serious: Yes (Other)
  Sender: FDA-Public Use
  Company Number: US-AMGEN-QUU348974

PATIENT
  Sex: Female
  Weight: 80.8 kg

DRUGS (10)
  1. ENBREL [Suspect]
     Indication: RHEUMATOID ARTHRITIS
     Route: 058
     Dates: start: 20010901
  2. ARAVA [Concomitant]
  3. CELEBREX [Concomitant]
     Route: 048
  4. FOLIC ACID [Concomitant]
  5. RESTORIL [Concomitant]
  6. ASPIRIN [Concomitant]
  7. MICARDIS [Concomitant]
  8. SINGULAIR [Concomitant]
  9. DETROL [Concomitant]
  10. NASONEX [Concomitant]

REACTIONS (12)
  - ASTHMA [None]
  - HISTOPLASMOSIS [None]
  - HYPERLIPIDAEMIA [None]
  - HYPERTENSION [None]
  - LUNG NEOPLASM [None]
  - OSTEOARTHRITIS [None]
  - PULMONARY GRANULOMA [None]
  - RHEUMATOID ARTHRITIS [None]
  - SLEEP DISORDER [None]
  - SYNOVIAL CYST [None]
  - UPPER RESPIRATORY TRACT INFECTION [None]
  - WEIGHT INCREASED [None]
